FAERS Safety Report 7820458-5 (Version None)
Quarter: 2011Q4

REPORT INFORMATION
  Report Type: 
  Country: None (occurrence: None)
  Receive Date: 20111018
  Receipt Date: 20111013
  Transmission Date: 20120403
  Serious: Yes (Other)
  Sender: FDA-Public Use
  Company Number: BR-ROCHE-1004635

PATIENT
  Sex: Female
  Weight: 90 kg

DRUGS (3)
  1. LEVOTHYROXINE SODIUM [Concomitant]
  2. NOVALGINA [Concomitant]
  3. MABTHERA [Suspect]
     Indication: PRODUCT USED FOR UNKNOWN INDICATION

REACTIONS (2)
  - ARTHROPATHY [None]
  - PAIN [None]
